FAERS Safety Report 7009106-4 (Version None)
Quarter: 2010Q3

REPORT INFORMATION
  Report Type: 
  Country: None (occurrence: None)
  Receive Date: 20100921
  Receipt Date: 20100908
  Transmission Date: 20110219
  Serious: Yes (Death)
  Sender: FDA-Public Use
  Company Number: WAES 1009USA03668

PATIENT

DRUGS (2)
  1. DECADRON [Suspect]
     Indication: MULTIPLE MYELOMA
     Dosage: 40 MG/PO
     Route: 048
  2. LENALIDOMIDE UNK [Suspect]
     Indication: MULTIPLE MYELOMA
     Dosage: 25 MG/DAILY/PO
     Route: 048

REACTIONS (5)
  - DEEP VEIN THROMBOSIS [None]
  - FATIGUE [None]
  - INFECTION [None]
  - PNEUMONIA [None]
  - THERAPEUTIC AGENT TOXICITY [None]
